FAERS Safety Report 15877949 (Version 2)
Quarter: 2019Q1

REPORT INFORMATION
  Report Type: Spontaneous
  Country: BR (occurrence: BR)
  Receive Date: 20190128
  Receipt Date: 20190201
  Transmission Date: 20190417
  Serious: No
  Sender: FDA-Public Use
  Company Number: BR-ROCHE-2251846

PATIENT
  Age: 40 Year
  Sex: Male

DRUGS (1)
  1. OCREVUS [Suspect]
     Active Substance: OCRELIZUMAB
     Indication: RELAPSING-REMITTING MULTIPLE SCLEROSIS
     Route: 042
     Dates: start: 2018

REACTIONS (5)
  - Myalgia [Not Recovered/Not Resolved]
  - Muscle fatigue [Recovered/Resolved]
  - Fatigue [Recovered/Resolved]
  - Balance disorder [Not Recovered/Not Resolved]
  - Drug ineffective [Unknown]
